FAERS Safety Report 5169367-3 (Version None)
Quarter: 2006Q4

REPORT INFORMATION
  Report Type: 
  Country: None (occurrence: None)
  Receive Date: 20061211
  Receipt Date: 20061204
  Transmission Date: 20070319
  Serious: Yes (Death, Other)
  Sender: FDA-Public Use
  Company Number: JP-BRISTOL-MYERS SQUIBB COMPANY-13600481

PATIENT
  Age: 71 Year
  Sex: Male

DRUGS (4)
  1. PACLITAXEL [Suspect]
     Indication: LUNG ADENOCARCINOMA
     Route: 042
  2. DEXAMETHASONE [Concomitant]
  3. RANITIDINE [Concomitant]
  4. DIPHENHYDRAMINE HCL [Concomitant]

REACTIONS (3)
  - BRONCHIECTASIS [None]
  - INTERSTITIAL LUNG DISEASE [None]
  - MALIGNANT NEOPLASM PROGRESSION [None]
